FAERS Safety Report 15804848 (Version 1)
Quarter: 2019Q1

REPORT INFORMATION
  Report Type: Spontaneous
  Country: US (occurrence: US)
  Receive Date: 20190109
  Receipt Date: 20190109
  Transmission Date: 20190417
  Serious: No
  Sender: FDA-Public Use
  Company Number: US-ASTRAZENECA-2019SE03235

PATIENT
  Age: 138 Day
  Sex: Male
  Weight: 6.8 kg

DRUGS (1)
  1. SYNAGIS [Suspect]
     Active Substance: PALIVIZUMAB
     Indication: RESPIRATORY SYNCYTIAL VIRUS INFECTION
     Route: 030
     Dates: start: 20181031

REACTIONS (1)
  - Wheezing [Not Recovered/Not Resolved]

NARRATIVE: CASE EVENT DATE: 20190104
